FAERS Safety Report 11237405 (Version 1)
Quarter: 2015Q3

REPORT INFORMATION
  Report Type: Report from Study
  Country: US (occurrence: US)
  Receive Date: 20150703
  Receipt Date: 20150703
  Transmission Date: 20151125
  Serious: Yes (Other)
  Sender: FDA-Public Use
  Company Number: PHEH2015US008715

PATIENT
  Age: 6 Year
  Sex: Female

DRUGS (3)
  1. ILARIS [Suspect]
     Active Substance: CANAKINUMAB
     Dosage: UNK (4TH DOSE)
     Route: 058
     Dates: start: 20150613
  2. ILARIS [Suspect]
     Active Substance: CANAKINUMAB
     Dosage: UNK (3RD DOSE)
     Route: 058
     Dates: start: 20150516
  3. ILARIS [Suspect]
     Active Substance: CANAKINUMAB
     Dosage: 60 MG, EVERY FOUR WEEKS
     Route: 058
     Dates: start: 20150404

REACTIONS (2)
  - Malaise [Unknown]
  - Nasopharyngitis [Recovered/Resolved]

NARRATIVE: CASE EVENT DATE: 20150501
